FAERS Safety Report 5848372-5 (Version None)
Quarter: 2008Q3

REPORT INFORMATION
  Report Type: 
  Country: None (occurrence: None)
  Receive Date: 20080818
  Receipt Date: 20080808
  Transmission Date: 20090109
  Serious: Yes (Hospitalization, Other)
  Sender: FDA-Public Use
  Company Number: US-AVENTIS-200812294US

PATIENT
  Sex: Female
  Weight: 104.33 kg

DRUGS (16)
  1. APIDRA [Suspect]
     Indication: DIABETES MELLITUS
     Route: 058
     Dates: start: 20080228, end: 20080430
  2. LANTUS [Concomitant]
  3. HYDROCHLOROTHIAZIDE [Concomitant]
     Indication: FLUID RETENTION
     Dosage: DOSE QUANTITY: 1
     Route: 048
  4. GABAPENTIN [Concomitant]
  5. NORVASC [Concomitant]
     Indication: HYPERTENSION
     Dosage: DOSE QUANTITY: 1
  6. COZAAR [Concomitant]
     Indication: HYPERTENSION
     Dosage: DOSE QUANTITY: 1
  7. METOPROLOL TARTRATE [Concomitant]
  8. LORTAB [Concomitant]
     Indication: PAIN MANAGEMENT
     Dosage: DOSE QUANTITY: 2
     Route: 048
  9. DIOVANE [Concomitant]
     Dosage: DOSE QUANTITY: 1
  10. ^R^ MEDICATION (INSULIN) [Concomitant]
     Dosage: DOSE: UNK
     Route: 058
  11. INSULIN ASPART [Concomitant]
     Dosage: DOSE: 0.5 U/KG/DAY
     Route: 058
  12. ASPIRIN [Concomitant]
     Dosage: DOSE: UNK
  13. ELAVIL [Concomitant]
     Dosage: DOSE: UNK
  14. FLEXERIL [Concomitant]
     Route: 048
  15. HYDROCODONE BITARTRATE + ACETAMINOPHEN [Concomitant]
     Dosage: DOSE: 750 MG /7.5 MG
     Route: 048
  16. VICODIN [Concomitant]
     Dosage: DOSE: 5/500, 2 TABS Q 6-8 HOURS
     Route: 048

REACTIONS (11)
  - ABDOMINAL PAIN UPPER [None]
  - BLADDER DISORDER [None]
  - BLOOD PRESSURE INCREASED [None]
  - COUGH [None]
  - DIARRHOEA [None]
  - DYSPNOEA [None]
  - HYPERSENSITIVITY [None]
  - OEDEMA PERIPHERAL [None]
  - PRURITUS [None]
  - RASH PAPULAR [None]
  - URTICARIA [None]
